APPROVED DRUG PRODUCT: PENTETATE ZINC TRISODIUM
Active Ingredient: PENTETATE ZINC TRISODIUM
Strength: EQ 1GM BASE/5ML (EQ 200MG BASE/ML) **Federal Register determination that product was not discontinued or withdrawn for safety or effectiveness reasons**
Dosage Form/Route: SOLUTION;INHALATION, INTRAVENOUS
Application: N021751 | Product #001
Applicant: HAMELN PHARMA PLUS GMBH
Approved: Aug 11, 2004 | RLD: Yes | RS: No | Type: DISCN